FAERS Safety Report 14573329 (Version 2)
Quarter: 2018Q1

REPORT INFORMATION
  Report Type: Spontaneous
  Country: DK (occurrence: DK)
  Receive Date: 20180226
  Receipt Date: 20180306
  Transmission Date: 20180509
  Serious: Yes (Other)
  Sender: FDA-Public Use
  Company Number: DK-PFIZER INC-2018078120

PATIENT
  Age: 29 Year
  Sex: Female

DRUGS (4)
  1. BRINTELLIX [Suspect]
     Active Substance: VORTIOXETINE HYDROBROMIDE
     Dosage: 20 MG, UNK
     Route: 065
     Dates: start: 20171017
  2. SERDOLECT [Suspect]
     Active Substance: SERTINDOLE
     Dosage: 16 MG, UNK
     Route: 065
     Dates: start: 20180202
  3. VENLAFAXINE HCL [Suspect]
     Active Substance: VENLAFAXINE HYDROCHLORIDE
     Dosage: 75 MG, UNK
     Route: 065
  4. SERDOLECT [Suspect]
     Active Substance: SERTINDOLE
     Dosage: 12 MG, UNK
     Route: 065

REACTIONS (2)
  - Electrocardiogram QT prolonged [Unknown]
  - Contraindicated product administered [Unknown]
